FAERS Safety Report 5914756-X (Version None)
Quarter: 2008Q4

REPORT INFORMATION
  Report Type: 
  Country: None (occurrence: None)
  Receive Date: 20081010
  Receipt Date: 20081006
  Transmission Date: 20090506
  Serious: Yes (Hospitalization)
  Sender: FDA-Public Use
  Company Number: FR-BRISTOL-MYERS SQUIBB COMPANY-14360036

PATIENT
  Age: 35 Year
  Sex: Male

DRUGS (4)
  1. ABILIFY [Suspect]
     Indication: PSYCHOTIC DISORDER
     Route: 048
  2. TRANXENE [Suspect]
     Indication: ANXIETY
     Route: 048
     Dates: start: 20080915, end: 20080916
  3. RIVOTRIL [Suspect]
     Indication: ANXIETY
     Dosage: RIVOTRIL 2.5MG/ML
     Route: 048
     Dates: start: 20080515
  4. IMOVANE [Suspect]
     Indication: INSOMNIA
     Dosage: IMOVANE 7.5MG
     Route: 048
     Dates: start: 20080912

REACTIONS (2)
  - FIXED ERUPTION [None]
  - TOXIC SKIN ERUPTION [None]
